FAERS Safety Report 5415589-3 (Version None)
Quarter: 2007Q3

REPORT INFORMATION
  Report Type: 
  Country: None (occurrence: None)
  Receive Date: 20070815
  Receipt Date: 20070813
  Transmission Date: 20080115
  Serious: Yes (Hospitalization)
  Sender: FDA-Public Use
  Company Number: US-JNJFOC-20070100418

PATIENT
  Sex: Male
  Weight: 82.56 kg

DRUGS (24)
  1. REMICADE [Suspect]
  2. REMICADE [Suspect]
  3. REMICADE [Suspect]
  4. REMICADE [Suspect]
  5. REMICADE [Suspect]
  6. REMICADE [Suspect]
  7. REMICADE [Suspect]
  8. REMICADE [Suspect]
  9. REMICADE [Suspect]
  10. REMICADE [Suspect]
  11. REMICADE [Suspect]
  12. REMICADE [Suspect]
  13. REMICADE [Suspect]
  14. REMICADE [Suspect]
  15. REMICADE [Suspect]
  16. REMICADE [Suspect]
  17. REMICADE [Suspect]
  18. REMICADE [Suspect]
     Indication: CROHN'S DISEASE
     Dosage: FIVE INFUSIONS PRIOR TO BASELINE
  19. AZATHIOPRINE [Suspect]
     Indication: CROHN'S DISEASE
  20. PROTONIX [Suspect]
     Indication: CROHN'S DISEASE
  21. FOLIC ACID [Suspect]
     Indication: CROHN'S DISEASE
  22. VITAMIN B-12 [Suspect]
     Indication: CROHN'S DISEASE
  23. ACETAMINOPHEN [Concomitant]
     Indication: PREMEDICATION
  24. ANTIHISTAMINES [Concomitant]
     Indication: PREMEDICATION

REACTIONS (2)
  - CROHN'S DISEASE [None]
  - POLYP [None]
